FAERS Safety Report 6502508-1 (Version None)
Quarter: 2009Q4

REPORT INFORMATION
  Report Type: 
  Country: None (occurrence: None)
  Receive Date: 20091217
  Receipt Date: 20091208
  Transmission Date: 20100525
  Serious: Yes (Other)
  Sender: FDA-Public Use
  Company Number: GB-RANBAXY-2009RR-29597

PATIENT
  Age: 62 Year
  Sex: Male

DRUGS (1)
  1. MINOCYCLINE [Suspect]
     Indication: LYMPHOMATOID PAPULOSIS
     Dosage: 100 MG, UNK

REACTIONS (1)
  - DRUG HYPERSENSITIVITY [None]
